FAERS Safety Report 25045170 (Version 1)
Quarter: 2025Q1

REPORT INFORMATION
  Report Type: Spontaneous
  Country: LK (occurrence: LK)
  Receive Date: 20250306
  Receipt Date: 20250306
  Transmission Date: 20250409
  Serious: Yes (Death, Life-Threatening, Hospitalization)
  Sender: ACCORD
  Company Number: LK-Accord-472157

PATIENT
  Age: 69 Year
  Sex: Male

DRUGS (1)
  1. METHOTREXATE [Suspect]
     Active Substance: METHOTREXATE
     Indication: Eczema

REACTIONS (11)
  - Neutropenic sepsis [Fatal]
  - Toxicity to various agents [Fatal]
  - Accidental overdose [Fatal]
  - Rash erythematous [Recovered/Resolved]
  - Pancytopenia [Recovering/Resolving]
  - Exfoliative rash [Recovered/Resolved]
  - Skin ulcer [Recovered/Resolved]
  - Mucosal ulceration [Recovered/Resolved]
  - Stomatitis [Recovered/Resolved]
  - Acute kidney injury [Recovering/Resolving]
  - Inappropriate schedule of product administration [Unknown]
